FAERS Safety Report 17908980 (Version 1)
Quarter: 2020Q2

REPORT INFORMATION
  Report Type: Report from Study
  Country: US (occurrence: US)
  Receive Date: 20200617
  Receipt Date: 20200617
  Transmission Date: 20200714
  Serious: Yes (Other)
  Sender: FDA-Public Use
  Company Number: US-ROCHE-2587893

PATIENT
  Age: 42 Year
  Sex: Female
  Weight: 77.18 kg

DRUGS (9)
  1. XYZAL [Concomitant]
     Active Substance: LEVOCETIRIZINE DIHYDROCHLORIDE
     Indication: HYPERSENSITIVITY
     Route: 065
  2. HYDROCODONE [Concomitant]
     Active Substance: HYDROCODONE
     Indication: PAIN
     Route: 048
     Dates: start: 201912
  3. KLONOPIN [Suspect]
     Active Substance: CLONAZEPAM
     Indication: PRODUCT USED FOR UNKNOWN INDICATION
     Dosage: TAKEN AS NEEDED AT BEDTIME FOR SLEEP
     Route: 048
     Dates: start: 20200101
  4. ACETAMINOPHEN. [Concomitant]
     Active Substance: ACETAMINOPHEN
     Indication: PAIN
     Route: 048
     Dates: start: 2010, end: 201912
  5. LINZESS [Concomitant]
     Active Substance: LINACLOTIDE
     Indication: CONSTIPATION
     Route: 065
     Dates: start: 2017
  6. SHORTEC [Concomitant]
     Active Substance: OXYCODONE HYDROCHLORIDE
     Indication: PAIN
     Dosage: TAKES 1 PILL ONE TO TWO TIMES A DAY
     Route: 065
     Dates: start: 20200101
  7. ZYRTEC [Concomitant]
     Active Substance: CETIRIZINE HYDROCHLORIDE
     Indication: HYPERSENSITIVITY
     Route: 065
     Dates: start: 2017
  8. OCREVUS [Suspect]
     Active Substance: OCRELIZUMAB
     Indication: RELAPSING-REMITTING MULTIPLE SCLEROSIS
     Dosage: YES
     Route: 042
     Dates: start: 201705
  9. SHORTEC [Concomitant]
     Active Substance: OXYCODONE HYDROCHLORIDE
     Indication: NEUROPATHY PERIPHERAL

REACTIONS (14)
  - Peroneal nerve palsy [Not Recovered/Not Resolved]
  - Multiple sclerosis relapse [Recovered/Resolved]
  - Urinary tract infection [Recovered/Resolved]
  - Mental impairment [Not Recovered/Not Resolved]
  - Off label use [Unknown]
  - Feeling abnormal [Not Recovered/Not Resolved]
  - Clumsiness [Not Recovered/Not Resolved]
  - Intervertebral disc protrusion [Recovering/Resolving]
  - Insomnia [Not Recovered/Not Resolved]
  - Vision blurred [Not Recovered/Not Resolved]
  - Intentional product use issue [Unknown]
  - Muscular weakness [Not Recovered/Not Resolved]
  - Weight increased [Not Recovered/Not Resolved]
  - Gait inability [Not Recovered/Not Resolved]

NARRATIVE: CASE EVENT DATE: 20200101
